FAERS Safety Report 6189023-2 (Version None)
Quarter: 2009Q2

REPORT INFORMATION
  Report Type: 
  Country: None (occurrence: None)
  Receive Date: 20090513
  Receipt Date: 20090506
  Transmission Date: 20091009
  Serious: Yes (Hospitalization)
  Sender: FDA-Public Use
  Company Number: US-ELI_LILLY_AND_COMPANY-US200905001074

PATIENT
  Sex: Female

DRUGS (1)
  1. HUMULIN R [Suspect]

REACTIONS (1)
  - HOSPITALISATION [None]
